FAERS Safety Report 26127283 (Version 1)
Quarter: 2025Q4

REPORT INFORMATION
  Report Type: Spontaneous
  Country: EU (occurrence: EU)
  Receive Date: 20251205
  Receipt Date: 20251205
  Transmission Date: 20260118
  Serious: Yes (Other)
  Sender: REGENERON
  Company Number: EU-REGENERON PHARMACEUTICALS, INC.-2025-192022

PATIENT

DRUGS (1)
  1. LIBTAYO [Suspect]
     Active Substance: CEMIPLIMAB-RWLC
     Indication: Squamous cell carcinoma of lung
     Dosage: UNK

REACTIONS (4)
  - Metastases to liver [Unknown]
  - Metastases to adrenals [Unknown]
  - Metastases to chest wall [Unknown]
  - EGFR gene mutation [Unknown]
